FAERS Safety Report 4981426-4 (Version None)
Quarter: 2006Q2

REPORT INFORMATION
  Report Type: 
  Country: None (occurrence: None)
  Receive Date: 20060424
  Receipt Date: 20060414
  Transmission Date: 20061013
  Serious: Yes (Hospitalization)
  Sender: FDA-Public Use
  Company Number: US-MERCK-0604USA02302

PATIENT
  Age: 60 Year
  Sex: Male

DRUGS (6)
  1. ZETIA [Suspect]
     Indication: BLOOD CHOLESTEROL
     Route: 048
     Dates: start: 20051101, end: 20060411
  2. LIPITOR [Concomitant]
     Route: 065
  3. NEXIUM [Concomitant]
     Route: 065
  4. SYNTHROID [Concomitant]
     Route: 065
  5. LISINOPRIL [Concomitant]
     Route: 048
  6. DILTIAZEM MALATE [Concomitant]
     Route: 065

REACTIONS (2)
  - CHEST PAIN [None]
  - MUSCLE SPASMS [None]
